FAERS Safety Report 20892201 (Version 2)
Quarter: 2022Q2

REPORT INFORMATION
  Report Type: Spontaneous
  Country: PL (occurrence: PL)
  Receive Date: 20220530
  Receipt Date: 20220607
  Transmission Date: 20220721
  Serious: Yes (Congenital Anomaly, Other)
  Sender: FDA-Public Use
  Company Number: PL-NOVARTISPH-NVSC2022PL122631

PATIENT
  Sex: Male

DRUGS (3)
  1. EVEROLIMUS [Suspect]
     Active Substance: EVEROLIMUS
     Indication: Foetal exposure during pregnancy
     Dosage: MATERNAL DOSE AT EXPOSURE: 5 MG, QD
     Route: 064
  2. EVEROLIMUS [Suspect]
     Active Substance: EVEROLIMUS
     Dosage: MATERNAL EXPOSURE DURING PREGNANCY:7.5 MG, QD
     Route: 064
  3. EVEROLIMUS [Suspect]
     Active Substance: EVEROLIMUS
     Dosage: MATERNAL EXPOSURE DURING PREGNANCY: TIW (DOSE REDUCED AFTER POSITIVE RESPONSE)
     Route: 064

REACTIONS (2)
  - Tuberous sclerosis complex [Unknown]
  - Foetal exposure during pregnancy [Unknown]
